FAERS Safety Report 5933771-3 (Version None)
Quarter: 2008Q4

REPORT INFORMATION
  Report Type: 
  Country: None (occurrence: None)
  Receive Date: 20081024
  Receipt Date: 20081006
  Transmission Date: 20090506
  Serious: Yes (Death)
  Sender: FDA-Public Use
  Company Number: 1-16735401

PATIENT
  Age: 74 Year
  Sex: Male

DRUGS (2)
  1. AMIODARONE HCL [Suspect]
     Indication: ATRIAL FIBRILLATION
     Dosage: 1100 MG, INTRAVENOUS
     Route: 042
  2. DOBUTAMINE HCL [Concomitant]

REACTIONS (6)
  - ACIDOSIS [None]
  - DIFFUSE ALVEOLAR DAMAGE [None]
  - MULTI-ORGAN FAILURE [None]
  - ORGANISING PNEUMONIA [None]
  - PULMONARY TOXICITY [None]
  - VENTRICULAR FIBRILLATION [None]
